FAERS Safety Report 23357604 (Version 1)
Quarter: 2024Q1

REPORT INFORMATION
  Report Type: Spontaneous
  Country: US (occurrence: US)
  Receive Date: 20240102
  Receipt Date: 20240102
  Transmission Date: 20240410
  Serious: No
  Sender: FDA-Public Use
  Company Number: US-BAYER-2023A184474

PATIENT
  Age: 57 Year
  Sex: Female

DRUGS (1)
  1. CLIMARA PRO [Suspect]
     Active Substance: ESTRADIOL\LEVONORGESTREL
     Dosage: 0.045 MG PER DAY/0.015 MG PER DAY
     Route: 062

REACTIONS (3)
  - Pelvic pain [None]
  - Product adhesion issue [None]
  - Product availability issue [None]

NARRATIVE: CASE EVENT DATE: 20231201
